FAERS Safety Report 6179544-0 (Version None)
Quarter: 2009Q2

REPORT INFORMATION
  Report Type: 
  Country: None (occurrence: None)
  Receive Date: 20090505
  Receipt Date: 20090429
  Transmission Date: 20091009
  Serious: Yes (Hospitalization, Other)
  Sender: FDA-Public Use
  Company Number: US-BRISTOL-MYERS SQUIBB COMPANY-14587430

PATIENT
  Age: 66 Year
  Sex: Female
  Weight: 84 kg

DRUGS (1)
  1. DASATINIB [Suspect]
     Indication: OVARIAN EPITHELIAL CANCER
     Dosage: 100MG/DAY ORAL GIVEN AT COURSE 1- THEN INCREASED TO 70MG/ BID
     Route: 048
     Dates: start: 20081010, end: 20090325

REACTIONS (3)
  - EXFOLIATIVE RASH [None]
  - PLEURAL EFFUSION [None]
  - SMALL INTESTINAL OBSTRUCTION [None]
